FAERS Safety Report 23052992 (Version 1)
Quarter: 2023Q4

REPORT INFORMATION
  Report Type: Report from Study
  Country: CO (occurrence: CO)
  Receive Date: 20231011
  Receipt Date: 20231011
  Transmission Date: 20240109
  Serious: Yes (Death, Other)
  Sender: FDA-Public Use
  Company Number: CO-ABBVIE-5445208

PATIENT
  Age: 60 Year
  Sex: Female

DRUGS (1)
  1. VENCLEXTA [Suspect]
     Active Substance: VENETOCLAX
     Indication: Acute myeloid leukaemia
     Dosage: FORM STRENGTH: 100MILLIGRAM
     Route: 048
     Dates: start: 20230531, end: 20230625

REACTIONS (1)
  - Death [Fatal]

NARRATIVE: CASE EVENT DATE: 20230930
